FAERS Safety Report 24749343 (Version 1)
Quarter: 2024Q4

REPORT INFORMATION
  Report Type: Spontaneous
  Country: CA (occurrence: CA)
  Receive Date: 20241218
  Receipt Date: 20241218
  Transmission Date: 20250114
  Serious: Yes (Other)
  Sender: ASTELLAS
  Company Number: CA-PFIZER INC-PV202400133759

PATIENT
  Age: 67 Year
  Sex: Male
  Weight: 69 kg

DRUGS (5)
  1. PADCEV [Suspect]
     Active Substance: ENFORTUMAB VEDOTIN\ENFORTUMAB VEDOTIN-EJFV
     Indication: Product used for unknown indication
     Dosage: 85 MG (1.25 MG/KG), CYCLIC D1 AND D8 OF 21 DAY CYCLE
     Route: 042
     Dates: start: 20241011
  2. PADCEV [Suspect]
     Active Substance: ENFORTUMAB VEDOTIN\ENFORTUMAB VEDOTIN-EJFV
     Dosage: 85 MG (1.25 MG/KG), CYCLIC D1 AND D8 OF 21 DAY CYCLE
     Route: 042
  3. PADCEV [Suspect]
     Active Substance: ENFORTUMAB VEDOTIN\ENFORTUMAB VEDOTIN-EJFV
     Dosage: 86 MG (1.25 MG/KG), CYCLIC D1 AND D8 OF 21 DAY CYCLE
     Route: 042
     Dates: start: 20241106
  4. PADCEV [Suspect]
     Active Substance: ENFORTUMAB VEDOTIN\ENFORTUMAB VEDOTIN-EJFV
     Dosage: 86 MG, (1.25 MG/KG), CYCLIC D1 AND D8 OF 21 DAY CYCLE
     Route: 042
     Dates: start: 20241113
  5. PADCEV [Suspect]
     Active Substance: ENFORTUMAB VEDOTIN\ENFORTUMAB VEDOTIN-EJFV
     Dosage: 86 MG, (1.25 MG/KG), CYCLIC D1 AND D8 OF 21 DAY CYCLE
     Route: 042
     Dates: start: 20241209

REACTIONS (17)
  - Diarrhoea haemorrhagic [Unknown]
  - Constipation [Unknown]
  - Rash [Unknown]
  - Decreased appetite [Unknown]
  - Hypertension [Unknown]
  - Pain [Unknown]
  - Pyrexia [Unknown]
  - Weight decreased [Unknown]
  - Myalgia [Unknown]
  - Bone pain [Unknown]
  - Insomnia [Unknown]
  - Decreased appetite [Unknown]
  - Abdominal pain [Unknown]
  - Alopecia [Unknown]
  - Insomnia [Unknown]
  - Blood urine present [Unknown]
  - Inappropriate schedule of product administration [Unknown]

NARRATIVE: CASE EVENT DATE: 20240101
